FAERS Safety Report 11982601 (Version 3)
Quarter: 2018Q2

REPORT INFORMATION
  Report Type: Report from Study
  Country: BR (occurrence: BR)
  Receive Date: 20160201
  Receipt Date: 20180620
  Transmission Date: 20180711
  Serious: Yes (Death, Hospitalization, Other)
  Sender: FDA-Public Use
  Company Number: PHHY2014BR164542

PATIENT
  Age: 53 Year
  Sex: Female

DRUGS (13)
  1. AFINITOR [Suspect]
     Active Substance: EVEROLIMUS
     Indication: NEUROENDOCRINE TUMOUR
     Dosage: 1 DF OF 10 MG, QD
     Route: 048
     Dates: start: 2013
  2. ASPIRIN. [Concomitant]
     Active Substance: ASPIRIN
     Indication: HYPERTENSION
  3. ASPIRIN. [Concomitant]
     Active Substance: ASPIRIN
     Indication: PRODUCT USED FOR UNKNOWN INDICATION
     Dosage: 1 DF OF 100 MG, QD
     Route: 048
  4. ATENOLOL/ABLOCK [Concomitant]
     Indication: HYPERTENSION
     Dosage: 1 TABLET OF 50 MG, QD
     Route: 048
  5. EXODUS//ESCITALOPRAM OXALATE [Concomitant]
     Active Substance: ESCITALOPRAM OXALATE
     Indication: DEPRESSION
     Dosage: 1 DF, QD
     Route: 065
     Dates: start: 2017
  6. EUTHYROX [Concomitant]
     Active Substance: LEVOTHYROXINE SODIUM
     Indication: HYPERTHYROIDISM
     Dosage: 1 DF OF 100 MG, QD
     Route: 048
     Dates: start: 2004
  7. XARELTO [Concomitant]
     Active Substance: RIVAROXABAN
     Indication: THROMBOSIS
     Dosage: 1 DF, QD
     Route: 065
     Dates: start: 201801
  8. ASPIRIN. [Concomitant]
     Active Substance: ASPIRIN
     Indication: CARDIOVASCULAR DISORDER
  9. AFINITOR [Suspect]
     Active Substance: EVEROLIMUS
     Indication: HEPATIC CANCER
  10. HYDROCHLOROTHIAZIDE W/LOSARTAN [Concomitant]
     Active Substance: HYDROCHLOROTHIAZIDE\LOSARTAN
     Indication: TACHYCARDIA
     Dosage: 1 DF OF 50/12.5 MG, QD
     Route: 048
  11. HYDROCHLOROTHIAZIDE W/LOSARTAN [Concomitant]
     Active Substance: HYDROCHLOROTHIAZIDE\LOSARTAN
     Indication: HYPERTENSION
  12. ALPON//ALPRAZOLAM [Concomitant]
     Indication: DEPRESSION
     Dosage: 1 DF OF 1 MG, QD
     Route: 048
  13. AAS [Suspect]
     Active Substance: ASPIRIN
     Indication: PRODUCT USED FOR UNKNOWN INDICATION
     Route: 065

REACTIONS (37)
  - Vomiting [Recovered/Resolved]
  - Peripheral swelling [Not Recovered/Not Resolved]
  - Panic disorder [Not Recovered/Not Resolved]
  - Abdominal discomfort [Unknown]
  - Abdominal pain upper [Not Recovered/Not Resolved]
  - Dyspnoea [Recovered/Resolved]
  - Pruritus [Recovered/Resolved]
  - Weight decreased [Unknown]
  - Oropharyngeal pain [Unknown]
  - Hepatic cancer [Fatal]
  - Malaise [Not Recovered/Not Resolved]
  - Skin plaque [Recovered/Resolved]
  - Benign ovarian tumour [Unknown]
  - Dysphonia [Unknown]
  - Skin reaction [Unknown]
  - Diarrhoea [Not Recovered/Not Resolved]
  - Chills [Recovered/Resolved]
  - Nausea [Not Recovered/Not Resolved]
  - Pain in extremity [Unknown]
  - Anaemia [Recovering/Resolving]
  - Inflammatory bowel disease [Not Recovered/Not Resolved]
  - Skin discolouration [Not Recovered/Not Resolved]
  - Pyrexia [Recovered/Resolved]
  - Hypersensitivity [Unknown]
  - Hepatic neoplasm [Recovering/Resolving]
  - Eating disorder [Unknown]
  - Decreased appetite [Not Recovered/Not Resolved]
  - Cough [Unknown]
  - Product use in unapproved indication [Unknown]
  - Vomiting [Not Recovered/Not Resolved]
  - Alopecia [Not Recovered/Not Resolved]
  - Flavivirus infection [Unknown]
  - Dyspnoea [Not Recovered/Not Resolved]
  - Menorrhagia [Not Recovered/Not Resolved]
  - Neuroendocrine tumour [Fatal]
  - Pain [Recovered/Resolved]
  - Anxiety [Not Recovered/Not Resolved]

NARRATIVE: CASE EVENT DATE: 2011
